FAERS Safety Report 23227165 (Version 1)
Quarter: 2023Q4

REPORT INFORMATION
  Report Type: Report from Study
  Country: ES (occurrence: ES)
  Receive Date: 20231124
  Receipt Date: 20231124
  Transmission Date: 20240110
  Serious: No
  Sender: FDA-Public Use
  Company Number: ES-BIOGEN-2023BI01236489

PATIENT
  Age: 70 Year
  Sex: Female
  Weight: 61.8 kg

DRUGS (12)
  1. ADUCANUMAB [Suspect]
     Active Substance: ADUCANUMAB
     Indication: Dementia Alzheimer^s type
     Dosage: TITRATION PERIOD
     Route: 050
     Dates: start: 20230418, end: 20230418
  2. ADUCANUMAB [Suspect]
     Active Substance: ADUCANUMAB
     Dosage: TITRATION PERIOD
     Route: 050
     Dates: start: 20230516, end: 20230516
  3. ADUCANUMAB [Suspect]
     Active Substance: ADUCANUMAB
     Dosage: TITRATION PERIOD
     Route: 050
     Dates: start: 20230613, end: 20230613
  4. ADUCANUMAB [Suspect]
     Active Substance: ADUCANUMAB
     Dosage: TITRATION PERIOD
     Route: 050
     Dates: start: 20230710, end: 20230710
  5. ADUCANUMAB [Suspect]
     Active Substance: ADUCANUMAB
     Dosage: TITRATION PERIOD
     Route: 050
     Dates: start: 20230808, end: 20230808
  6. ADUCANUMAB [Suspect]
     Active Substance: ADUCANUMAB
     Dosage: TITRATION PERIOD
     Route: 050
     Dates: start: 20230905, end: 20230905
  7. ADUCANUMAB [Suspect]
     Active Substance: ADUCANUMAB
     Dosage: MAINTENANCE PERIOD
     Route: 050
     Dates: start: 20231009
  8. VIZAMYL [Suspect]
     Active Substance: FLUTEMETAMOL F-18
     Indication: Positron emission tomogram
     Route: 050
     Dates: start: 20230328, end: 20230328
  9. ATORVASTATIN CALCIUM [Concomitant]
     Active Substance: ATORVASTATIN CALCIUM
     Route: 050
     Dates: start: 20160921
  10. VORTIOXETINE [Concomitant]
     Active Substance: VORTIOXETINE
     Route: 050
     Dates: start: 20161203
  11. LORAZEPAM [Concomitant]
     Active Substance: LORAZEPAM
     Route: 050
     Dates: start: 20160921
  12. IBANDRONIC ACID [Concomitant]
     Active Substance: IBANDRONIC ACID
     Route: 050
     Dates: start: 20211216

REACTIONS (1)
  - Amyloid related imaging abnormality-oedema/effusion [Not Recovered/Not Resolved]

NARRATIVE: CASE EVENT DATE: 20230919
